FAERS Safety Report 10046609 (Version 2)
Quarter: 2014Q2

REPORT INFORMATION
  Report Type: Spontaneous
  Country: US (occurrence: US)
  Receive Date: 20140331
  Receipt Date: 20140506
  Transmission Date: 20141212
  Serious: No
  Sender: FDA-Public Use
  Company Number: US-SHIRE-US201400889

PATIENT
  Age: 80 Year
  Sex: Male
  Weight: 63.95 kg

DRUGS (5)
  1. LIALDA [Suspect]
     Indication: ABNORMAL FAECES
     Dosage: 2.4 G (TWO 1.2G), 2X/DAY:BID (IN THE MORNING AND THE EVENING)
     Route: 048
     Dates: start: 201402, end: 201403
  2. LIALDA [Suspect]
     Dosage: 2.4 G (TWO 1.2G), 1X/DAY:QD (IN MORNING)
     Route: 048
     Dates: start: 201403
  3. AMLODIPINE BENAZEPRIL [Concomitant]
     Indication: BLOOD PRESSURE INCREASED
     Dosage: 5/20 MG, 1X/DAY:QD
     Route: 048
  4. DORZOLAMIDE HCL-TIMOLOL MALEATE [Concomitant]
     Indication: GLAUCOMA
     Dosage: 2 GTT (EACH EYE), 2X/DAY:BID
     Route: 047
  5. LATANOPROST [Concomitant]
     Indication: GLAUCOMA
     Dosage: 1 GTT (EACH EYE), 1X/DAY:QD (AT NIGHT)
     Route: 047

REACTIONS (5)
  - Medication residue present [Unknown]
  - Frequent bowel movements [Recovered/Resolved]
  - Neck pain [Recovered/Resolved]
  - Drug prescribing error [Recovered/Resolved]
  - Off label use [Not Recovered/Not Resolved]
